FAERS Safety Report 21038658 (Version 1)
Quarter: 2022Q3

REPORT INFORMATION
  Report Type: Report from Study
  Country: JP (occurrence: JP)
  Receive Date: 20220704
  Receipt Date: 20220704
  Transmission Date: 20221027
  Serious: Yes (Death, Hospitalization, Other)
  Sender: FDA-Public Use
  Company Number: JP-ONO-2022JP003494

PATIENT
  Age: 71 Year
  Sex: Male
  Weight: 61 kg

DRUGS (21)
  1. YERVOY [Suspect]
     Active Substance: IPILIMUMAB
     Indication: Non-small cell lung cancer recurrent
     Dosage: 61 MG
     Route: 041
     Dates: start: 20210611, end: 20210726
  2. OPDIVO [Suspect]
     Active Substance: NIVOLUMAB
     Indication: Non-small cell lung cancer recurrent
     Dosage: 360 MG
     Route: 041
     Dates: start: 20210611, end: 20210726
  3. LOXOPROFEN [Concomitant]
     Active Substance: LOXOPROFEN
     Indication: Product used for unknown indication
     Dosage: 60 MG, Q8H
     Route: 048
     Dates: start: 20210519
  4. MAGNESIUM OXIDE [Concomitant]
     Active Substance: MAGNESIUM OXIDE
     Indication: Product used for unknown indication
     Dosage: 330 MG, Q8H
     Route: 048
     Dates: start: 20210524, end: 20210628
  5. MAGNESIUM OXIDE [Concomitant]
     Active Substance: MAGNESIUM OXIDE
     Dosage: 330 MG, Q8H
     Route: 048
     Dates: start: 20210808, end: 20210830
  6. RABEPRAZOLE SODIUM [Concomitant]
     Active Substance: RABEPRAZOLE SODIUM
     Indication: Product used for unknown indication
     Dosage: 10 MG, EVERYDAY
     Route: 048
     Dates: start: 20210525
  7. DABIGATRAN ETEXILATE MESYLATE [Concomitant]
     Active Substance: DABIGATRAN ETEXILATE MESYLATE
     Indication: Product used for unknown indication
     Dosage: 150 MG, Q12H
     Route: 048
     Dates: start: 20210529, end: 20210712
  8. DABIGATRAN ETEXILATE MESYLATE [Concomitant]
     Active Substance: DABIGATRAN ETEXILATE MESYLATE
     Dosage: 150 MG, Q12H
     Route: 048
     Dates: start: 20210808, end: 20210830
  9. AMLODIPINE\TELMISARTAN [Concomitant]
     Active Substance: AMLODIPINE\TELMISARTAN
     Indication: Product used for unknown indication
     Dosage: 1 DF, EVERYDAY
     Route: 048
     Dates: start: 20210529, end: 20210712
  10. AMLODIPINE\TELMISARTAN [Concomitant]
     Active Substance: AMLODIPINE\TELMISARTAN
     Dosage: 1 DF, EVERYDAY
     Route: 048
     Dates: start: 20210808, end: 20210810
  11. ROSUVASTATIN CALCIUM [Concomitant]
     Active Substance: ROSUVASTATIN CALCIUM
     Indication: Product used for unknown indication
     Dosage: 2.5 MG, EVERYDAY
     Route: 048
     Dates: start: 20210529, end: 20210715
  12. ROSUVASTATIN CALCIUM [Concomitant]
     Active Substance: ROSUVASTATIN CALCIUM
     Dosage: 2.5 MG, EVERYDAY
     Route: 048
     Dates: start: 20210809, end: 20210830
  13. BISOPROLOL FUMARATE [Concomitant]
     Active Substance: BISOPROLOL FUMARATE
     Indication: Product used for unknown indication
     Dosage: 5 MG, EVERYDAY
     Route: 048
     Dates: start: 20210528, end: 20210711
  14. BISOPROLOL FUMARATE [Concomitant]
     Active Substance: BISOPROLOL FUMARATE
     Dosage: 5 MG, EVERYDAY
     Route: 048
     Dates: start: 20210808, end: 20210830
  15. OXYCODONE HYDROCHLORIDE [Concomitant]
     Active Substance: OXYCODONE HYDROCHLORIDE
     Indication: Product used for unknown indication
     Dosage: 5 MG, Q12H
     Route: 048
     Dates: start: 20210524, end: 20210830
  16. MORPHINE HYDROCHLORIDE [Concomitant]
     Active Substance: MORPHINE HYDROCHLORIDE
     Indication: Product used for unknown indication
     Dosage: 5 MG, PRN
     Route: 048
     Dates: start: 20210529
  17. LASCUFLOXACIN HYDROCHLORIDE [Concomitant]
     Active Substance: LASCUFLOXACIN HYDROCHLORIDE
     Indication: Product used for unknown indication
     Dosage: 75 MG, EVERYDAY
     Route: 048
     Dates: start: 20210617, end: 20210623
  18. BETAMETHASONE DIPROPIONATE [Concomitant]
     Active Substance: BETAMETHASONE DIPROPIONATE
     Indication: Product used for unknown indication
     Dosage: UNK, ONCE TO TWICE/DAY
     Route: 061
     Dates: start: 20210702
  19. HEPARINOID [Concomitant]
     Indication: Product used for unknown indication
     Dosage: UNK, ONCE TO TWICE/DAY
     Route: 061
     Dates: start: 20210702
  20. ALENDRONATE [Concomitant]
     Active Substance: ALENDRONATE SODIUM
     Indication: Product used for unknown indication
     Dosage: 35 MG, QW
     Route: 048
     Dates: start: 20210906, end: 20210906
  21. CALONAL [Concomitant]
     Active Substance: ACETAMINOPHEN
     Indication: Product used for unknown indication
     Dosage: 500 MG, Q12H
     Route: 048
     Dates: start: 20210906

REACTIONS (2)
  - Pneumonitis [Fatal]
  - Lung disorder [Recovering/Resolving]

NARRATIVE: CASE EVENT DATE: 20210808
